FAERS Safety Report 24602430 (Version 3)
Quarter: 2025Q1

REPORT INFORMATION
  Report Type: Report from Study
  Country: CA (occurrence: CA)
  Receive Date: 20241111
  Receipt Date: 20250210
  Transmission Date: 20250409
  Serious: Yes (Life-Threatening, Other)
  Sender: ALEXION PHARMACEUTICALS
  Company Number: CA-AstraZeneca-CH-00731330A

PATIENT

DRUGS (1)
  1. ACALABRUTINIB [Suspect]
     Active Substance: ACALABRUTINIB
     Indication: Chronic lymphocytic leukaemia
     Dosage: 100 MILLIGRAM, BID

REACTIONS (4)
  - Haemorrhage [Unknown]
  - Thrombocytopenia [Unknown]
  - Neutropenia [Unknown]
  - Toxicity to various agents [Unknown]
